FAERS Safety Report 15531888 (Version 2)
Quarter: 2019Q1

REPORT INFORMATION
  Report Type: Spontaneous
  Country: IT (occurrence: IT)
  Receive Date: 20181019
  Receipt Date: 20190205
  Transmission Date: 20190417
  Serious: Yes (Hospitalization, Other)
  Sender: FDA-Public Use
  Company Number: IT-ACCORD-073601

PATIENT
  Age: 54 Year
  Sex: Male

DRUGS (11)
  1. PREDNISONE. [Suspect]
     Active Substance: PREDNISONE
     Indication: IMMUNOSUPPRESSANT DRUG THERAPY
     Route: 048
  2. IRINOTECAN [Concomitant]
     Active Substance: IRINOTECAN
     Indication: COLON CANCER METASTATIC
     Dosage: 165 MG/M2, CYCLIC
     Dates: start: 20170223
  3. METHYLPREDNISOLONE. [Suspect]
     Active Substance: METHYLPREDNISOLONE
     Indication: IMMUNOSUPPRESSANT DRUG THERAPY
     Route: 042
  4. CALCIUM [Concomitant]
     Active Substance: CALCIUM
     Indication: LUMBAR VERTEBRAL FRACTURE
     Dosage: UNK
     Dates: start: 201702
  5. VITAMIN D [Concomitant]
     Active Substance: CHOLECALCIFEROL
     Indication: LUMBAR VERTEBRAL FRACTURE
     Dosage: UNK
     Dates: start: 201702
  6. FLUOROURACIL. [Suspect]
     Active Substance: FLUOROURACIL
     Indication: COLON CANCER METASTATIC
     Dosage: ALSO TAKEN 2400 MG/M2 (46HOURS CONTINUING INFUSION)
     Route: 040
     Dates: start: 20170223
  7. LEUCOVORIN. [Suspect]
     Active Substance: LEUCOVORIN
     Indication: COLON CANCER METASTATIC
     Dosage: UNK
     Dates: start: 20170223
  8. BEVACIZUMAB. [Suspect]
     Active Substance: BEVACIZUMAB
     Indication: COLON CANCER METASTATIC
     Dosage: 5 MG/KG, CYCLIC (DAY 1, EVERY 14 DAYS)
     Route: 042
     Dates: start: 20170223
  9. OXALIPLATIN. [Suspect]
     Active Substance: OXALIPLATIN
     Indication: COLON CANCER METASTATIC
     Dosage: 85 MG/M2, CYCLIC
     Dates: start: 20170223
  10. CALCIUM FOLINATE/FOLINIC ACID [Suspect]
     Active Substance: LEUCOVORIN CALCIUM
     Indication: COLON CANCER METASTATIC
     Dosage: 200 MG/M2, CYCLIC
     Dates: start: 20170223
  11. DENOSUMAB [Concomitant]
     Active Substance: DENOSUMAB
     Indication: LUMBAR VERTEBRAL FRACTURE
     Dosage: UNK
     Dates: start: 201702

REACTIONS (7)
  - Limbic encephalitis [Recovering/Resolving]
  - Lethargy [Recovering/Resolving]
  - Therapeutic response decreased [Recovering/Resolving]
  - Cognitive disorder [Recovering/Resolving]
  - Depressed level of consciousness [Recovering/Resolving]
  - Body temperature increased [Recovering/Resolving]
  - Bradykinesia [Recovering/Resolving]

NARRATIVE: CASE EVENT DATE: 20170403
